FAERS Safety Report 6111948-4 (Version None)
Quarter: 2009Q1

REPORT INFORMATION
  Report Type: 
  Country: None (occurrence: None)
  Receive Date: 20090311
  Receipt Date: 20090304
  Transmission Date: 20090719
  Serious: Yes (Other)
  Sender: FDA-Public Use
  Company Number: JP-B.I. PHARMACEUTICALS,INC./RIDGEFIELD-2009-BP-01000NB

PATIENT
  Sex: Male
  Weight: 61 kg

DRUGS (10)
  1. SPIRIVA [Suspect]
     Indication: CHRONIC OBSTRUCTIVE PULMONARY DISEASE
     Dosage: 18MCG
     Route: 055
     Dates: start: 20081112, end: 20081116
  2. AMLODIPINE [Concomitant]
     Indication: HYPERTENSION
     Dosage: 5MG
     Route: 048
     Dates: start: 20071010
  3. NU-LOTAN [Concomitant]
     Indication: HYPERTENSION
     Dosage: 50MG
     Route: 048
     Dates: start: 20070221
  4. FLUITRAN [Concomitant]
     Indication: HYPERTENSION
     Dosage: 2MG
     Route: 048
     Dates: start: 20070221
  5. HOKUNALIN:TAPE [Concomitant]
     Indication: CHRONIC OBSTRUCTIVE PULMONARY DISEASE
     Dosage: 2MG
     Route: 062
     Dates: start: 20070627, end: 20081112
  6. SPIROPENT [Concomitant]
     Indication: CHRONIC OBSTRUCTIVE PULMONARY DISEASE
     Dosage: 40MCG
     Route: 048
     Dates: start: 20081112
  7. MYONAL [Concomitant]
     Indication: TYPE 2 DIABETES MELLITUS
     Dosage: 150MG
     Route: 048
     Dates: start: 20080109
  8. KINEDAK [Concomitant]
     Indication: TYPE 2 DIABETES MELLITUS
     Dosage: 150MCG
     Route: 048
     Dates: start: 20080206, end: 20081112
  9. LOXONIN [Concomitant]
     Indication: BACK PAIN
     Route: 062
     Dates: start: 20080723
  10. SEIBULE [Concomitant]
     Indication: TYPE 2 DIABETES MELLITUS
     Dosage: 225MG
     Route: 048
     Dates: start: 20080305

REACTIONS (3)
  - EYE PAIN [None]
  - PHOTOPHOBIA [None]
  - VISUAL ACUITY REDUCED [None]
